FAERS Safety Report 10245335 (Version 1)
Quarter: 2014Q2

REPORT INFORMATION
  Report Type: Report from Study
  Country: IT (occurrence: IT)
  Receive Date: 20140618
  Receipt Date: 20140618
  Transmission Date: 20141212
  Serious: Yes (Other)
  Sender: FDA-Public Use
  Company Number: IT-ROCHE-1418544

PATIENT
  Sex: 0

DRUGS (5)
  1. TRASTUZUMAB [Suspect]
     Indication: BREAST CANCER
     Dosage: LOADING DOSE
     Route: 065
  2. TRASTUZUMAB [Suspect]
     Dosage: 3 CYCLES
     Route: 065
  3. MYOCET [Suspect]
     Indication: BREAST CANCER
     Route: 065
  4. CYCLOPHOSPHAMIDE [Suspect]
     Indication: BREAST CANCER
     Dosage: ON DAY 1
     Route: 065
  5. PACLITAXEL [Suspect]
     Indication: BREAST CANCER
     Dosage: 12 WEEKLY DOSES
     Route: 065

REACTIONS (7)
  - Neutropenia [Unknown]
  - Febrile neutropenia [Unknown]
  - Paraesthesia [Unknown]
  - Erythema [Unknown]
  - Ejection fraction decreased [Unknown]
  - Vomiting [Unknown]
  - Alopecia [Unknown]
